FAERS Safety Report 16633733 (Version 1)
Quarter: 2019Q3

REPORT INFORMATION
  Report Type: Spontaneous
  Country: US (occurrence: US)
  Receive Date: 20190725
  Receipt Date: 20190725
  Transmission Date: 20191004
  Serious: No
  Sender: FDA-Public Use
  Company Number: US-DERMIRA, INC.-US-2019DER000348

PATIENT
  Age: 33 Year
  Sex: Female

DRUGS (3)
  1. QBREXZA [Suspect]
     Active Substance: GLYCOPYRRONIUM TOSYLATE
     Indication: HYPERHIDROSIS
     Dosage: UNK, QD
     Route: 061
     Dates: start: 20190523, end: 20190523
  2. QBREXZA [Suspect]
     Active Substance: GLYCOPYRRONIUM TOSYLATE
     Dosage: UNK
     Route: 061
     Dates: start: 20190526
  3. MONTELUKAST [Concomitant]
     Active Substance: MONTELUKAST SODIUM
     Indication: SEASONAL ALLERGY
     Dosage: 10 MG, UNK
     Route: 048

REACTIONS (8)
  - Feeding disorder [Recovered/Resolved]
  - Wrong technique in product usage process [Unknown]
  - Accidental overdose [Unknown]
  - Urinary retention [Recovered/Resolved]
  - Aptyalism [Recovered/Resolved]
  - Dry mouth [Recovered/Resolved]
  - Product dose omission [Unknown]
  - Tongue discolouration [Recovered/Resolved]

NARRATIVE: CASE EVENT DATE: 20190523
